FAERS Safety Report 15180134 (Version 5)
Quarter: 2021Q1

REPORT INFORMATION
  Report Type: Spontaneous
  Country: US (occurrence: US)
  Receive Date: 20180723
  Receipt Date: 20210202
  Transmission Date: 20210419
  Serious: No
  Sender: FDA-Public Use
  Company Number: US-PFIZER INC-2018296041

PATIENT
  Age: 53 Year
  Sex: Female
  Weight: 72 kg

DRUGS (5)
  1. LYRICA [Suspect]
     Active Substance: PREGABALIN
     Indication: DIABETIC NEUROPATHY
     Dosage: 150 MG, 3X/DAY
     Route: 048
     Dates: start: 2016
  2. INSULIN [Concomitant]
     Active Substance: INSULIN NOS
     Indication: TYPE 2 DIABETES MELLITUS
     Dosage: UNK
  3. NOVOLOG MIX 70/30 [Concomitant]
     Active Substance: INSULIN ASPART
     Indication: TYPE 2 DIABETES MELLITUS
     Dosage: UNK, AS NEEDED (USUALLY TAKING BETWEEN 45 AND 50 UNITS IN THE MORNING AND 30 UNITS AFTER DINNER)
  4. METFORMIN [Concomitant]
     Active Substance: METFORMIN HYDROCHLORIDE
     Indication: TYPE 2 DIABETES MELLITUS
     Dosage: 1000 MG, 2X/DAY
  5. LYRICA [Suspect]
     Active Substance: PREGABALIN
     Indication: NEUROPATHY PERIPHERAL
     Dosage: 50 G, 3X/DAY
     Route: 048

REACTIONS (7)
  - Pain [Recovered/Resolved]
  - Malaise [Unknown]
  - Anxiety [Unknown]
  - Withdrawal syndrome [Recovered/Resolved]
  - Prescribed overdose [Unknown]
  - Pain in extremity [Recovered/Resolved]
  - Insomnia [Recovered/Resolved]
